FAERS Safety Report 7089794-7 (Version None)
Quarter: 2011Q1

REPORT INFORMATION
  Report Type: 
  Country: None (occurrence: None)
  Receive Date: 20101108
  Receipt Date: 20101103
  Transmission Date: 20110831
  Serious: Yes (Hospitalization)
  Sender: FDA-Public Use
  Company Number: FR-GENENTECH-257442

PATIENT
  Sex: Female

DRUGS (4)
  1. LEVOTHYROXINE SODIUM [Concomitant]
     Indication: HYPOPITUITARISM
     Dosage: 0.075 A?G, UNK
     Route: 065
     Dates: start: 20070201
  2. ATORVASTATIN [Concomitant]
     Indication: DYSLIPIDAEMIA
     Dosage: 10 MG, UNK
     Route: 065
     Dates: start: 20080222
  3. SOMATROPIN RDNA [Suspect]
     Indication: GROWTH HORMONE DEFICIENCY
     Dosage: 0.2 MG, QD
     Route: 058
     Dates: start: 20070426
  4. HYDROCORTISONE [Concomitant]
     Indication: HYPOPITUITARISM
     Dosage: 20 MG, UNK
     Route: 065
     Dates: start: 20070201

REACTIONS (2)
  - VISUAL PATHWAY DISORDER [None]
  - PITUITARY TUMOUR [None]
